FAERS Safety Report 16181278 (Version 4)
Quarter: 2019Q2

REPORT INFORMATION
  Report Type: Spontaneous
  Country: US (occurrence: US)
  Receive Date: 20190410
  Receipt Date: 20190628
  Transmission Date: 20190711
  Serious: No
  Sender: FDA-Public Use
  Company Number: US-VIFOR (INTERNATIONAL) INC.-VIT-2019-03131

PATIENT
  Age: 67 Year
  Sex: Female
  Weight: 68.46 kg

DRUGS (12)
  1. CHLORTHALIDONE. [Concomitant]
     Active Substance: CHLORTHALIDONE
  2. FAMOTIDINE. [Concomitant]
     Active Substance: FAMOTIDINE
  3. DIPHENHYDRAMINE-APAP [Concomitant]
  4. RANITIDINE HCL [Concomitant]
     Active Substance: RANITIDINE HYDROCHLORIDE
  5. TRIAMCINOLONE ACETONIDE. [Concomitant]
     Active Substance: TRIAMCINOLONE ACETONIDE
  6. LOVASTATIN. [Concomitant]
     Active Substance: LOVASTATIN
  7. ASPIRIN. [Concomitant]
     Active Substance: ASPIRIN
  8. LISINOPRIL. [Concomitant]
     Active Substance: LISINOPRIL
  9. CIMETIDINE [Concomitant]
     Active Substance: CIMETIDINE
  10. VELTASSA [Suspect]
     Active Substance: PATIROMER
     Indication: HYPERKALAEMIA
     Route: 048
     Dates: start: 20190319
  11. LEVOTHYROXINE SODIUM. [Concomitant]
     Active Substance: LEVOTHYROXINE SODIUM
  12. VELTASSA [Suspect]
     Active Substance: PATIROMER
     Route: 048

REACTIONS (9)
  - Vomiting [Unknown]
  - Asthenia [Unknown]
  - Abdominal discomfort [Unknown]
  - Abdominal pain upper [Not Recovered/Not Resolved]
  - Pyrexia [Unknown]
  - Mobility decreased [Unknown]
  - Off label use [Unknown]
  - Malaise [Unknown]
  - Diarrhoea [Not Recovered/Not Resolved]

NARRATIVE: CASE EVENT DATE: 2019
